FAERS Safety Report 21725965 (Version 1)
Quarter: 2022Q4

REPORT INFORMATION
  Report Type: Spontaneous
  Country: US (occurrence: None)
  Receive Date: 20221213
  Receipt Date: 20221213
  Transmission Date: 20230112
  Serious: Yes (Other)
  Sender: FDA-Public Use
  Company Number: None

PATIENT
  Age: 63 Year
  Sex: Female

DRUGS (6)
  1. OTEZLA [Suspect]
     Active Substance: APREMILAST
     Indication: Fatigue
     Dosage: FREQUENCY : DAILY;?
     Dates: start: 202209, end: 20220911
  2. OTEZLA [Suspect]
     Active Substance: APREMILAST
     Indication: Asthenia
  3. LIPITOR [Concomitant]
     Active Substance: ATORVASTATIN CALCIUM
  4. TRAZODONE [Concomitant]
     Active Substance: TRAZODONE HYDROCHLORIDE
  5. OMEPRAZOLE [Concomitant]
     Active Substance: OMEPRAZOLE
  6. OXYGEN [Concomitant]
     Active Substance: OXYGEN

REACTIONS (3)
  - Disorientation [None]
  - Tremor [None]
  - Hypersomnia [None]

NARRATIVE: CASE EVENT DATE: 20220909
